FAERS Safety Report 6568902-8 (Version None)
Quarter: 2010Q1

REPORT INFORMATION
  Report Type: 
  Country: None (occurrence: None)
  Receive Date: 20100201
  Receipt Date: 20100201
  Transmission Date: 20100710
  Serious: No
  Sender: FDA-Public Use
  Company Number: None

PATIENT
  Sex: Female
  Weight: 58.0604 kg

DRUGS (1)
  1. LYRICA [Suspect]
     Indication: PROCEDURAL PAIN
     Dosage: 1 CAPSULE TWICE DAILY
     Dates: start: 20091116, end: 20091122

REACTIONS (5)
  - AMNESIA [None]
  - DISORIENTATION [None]
  - FEELING ABNORMAL [None]
  - GAIT DISTURBANCE [None]
  - UNEVALUABLE EVENT [None]
